FAERS Safety Report 4750179-7 (Version None)
Quarter: 2005Q3

REPORT INFORMATION
  Report Type: 
  Country: None (occurrence: None)
  Receive Date: 20050823
  Receipt Date: 20050812
  Transmission Date: 20060218
  Serious: Yes (Hospitalization)
  Sender: FDA-Public Use
  Company Number: US-JNJFOC-20050706165

PATIENT
  Sex: Female
  Weight: 68.04 kg

DRUGS (26)
  1. INFLIXIMAB [Suspect]
  2. INFLIXIMAB [Suspect]
  3. INFLIXIMAB [Suspect]
  4. INFLIXIMAB [Suspect]
  5. INFLIXIMAB [Suspect]
  6. INFLIXIMAB [Suspect]
  7. INFLIXIMAB [Suspect]
  8. INFLIXIMAB [Suspect]
  9. INFLIXIMAB [Suspect]
  10. INFLIXIMAB [Suspect]
  11. INFLIXIMAB [Suspect]
  12. INFLIXIMAB [Suspect]
  13. INFLIXIMAB [Suspect]
  14. INFLIXIMAB [Suspect]
  15. INFLIXIMAB [Suspect]
  16. INFLIXIMAB [Suspect]
  17. INFLIXIMAB [Suspect]
  18. INFLIXIMAB [Suspect]
  19. INFLIXIMAB [Suspect]
  20. INFLIXIMAB [Suspect]
  21. INFLIXIMAB [Suspect]
  22. INFLIXIMAB [Suspect]
  23. INFLIXIMAB [Suspect]
  24. INFLIXIMAB [Suspect]
     Indication: CROHN'S DISEASE
  25. ANTIBIOTICS [Suspect]
     Indication: CROHN'S DISEASE
  26. NARCOTIC ANALGESICS [Suspect]
     Indication: CROHN'S DISEASE

REACTIONS (1)
  - COLITIS ISCHAEMIC [None]
